FAERS Safety Report 4844243-1 (Version None)
Quarter: 2005Q4

REPORT INFORMATION
  Report Type: 
  Country: None (occurrence: None)
  Receive Date: 20051202
  Receipt Date: 20051010
  Transmission Date: 20060501
  Serious: Yes (Other)
  Sender: FDA-Public Use
  Company Number: GB-AVENTIS-200519100GDDC

PATIENT
  Sex: Female

DRUGS (3)
  1. LANTUS [Suspect]
  2. OPTIPEN (INSULIN PUMP) [Suspect]
  3. HUMALOG [Suspect]
     Dosage: DOSE UNIT: UNITS

REACTIONS (4)
  - DEVICE MALFUNCTION [None]
  - HYPOGLYCAEMIA [None]
  - PHARMACEUTICAL PRODUCT COMPLAINT [None]
  - WRONG DRUG ADMINISTERED [None]
